FAERS Safety Report 11138099 (Version 1)
Quarter: 2015Q2

REPORT INFORMATION
  Report Type: Report from Study
  Country: JP (occurrence: JP)
  Receive Date: 20150526
  Receipt Date: 20150526
  Transmission Date: 20150821
  Serious: Yes (Life-Threatening, Hospitalization, Other)
  Sender: FDA-Public Use
  Company Number: JP-CELGENE-087-50794-13041142

PATIENT
  Age: 74 Year
  Sex: Male
  Weight: 53 kg

DRUGS (25)
  1. VIDAZA [Suspect]
     Active Substance: AZACITIDINE
     Route: 041
     Dates: start: 20130418, end: 20130424
  2. TAKEPRON [Concomitant]
     Active Substance: LANSOPRAZOLE
     Route: 065
     Dates: end: 20131211
  3. KYTRIL [Concomitant]
     Active Substance: GRANISETRON HYDROCHLORIDE
     Route: 065
     Dates: start: 20130531, end: 20131028
  4. DALACIN-P [Concomitant]
     Indication: PRODUCT USED FOR UNKNOWN INDICATION
     Route: 065
     Dates: start: 20130406, end: 20130508
  5. PRIMPERAN [Concomitant]
     Active Substance: METOCLOPRAMIDE HYDROCHLORIDE
     Indication: PRODUCT USED FOR UNKNOWN INDICATION
     Route: 065
     Dates: start: 20130320, end: 20130321
  6. VIDAZA [Suspect]
     Active Substance: AZACITIDINE
     Indication: MYELODYSPLASTIC SYNDROME
     Route: 041
     Dates: start: 20130206, end: 20130212
  7. VIDAZA [Suspect]
     Active Substance: AZACITIDINE
     Route: 041
     Dates: start: 20130730, end: 20130805
  8. VIDAZA [Suspect]
     Active Substance: AZACITIDINE
     Route: 041
     Dates: start: 20130904, end: 20130909
  9. ITRIZOLE [Concomitant]
     Active Substance: ITRACONAZOLE
     Indication: PRODUCT USED FOR UNKNOWN INDICATION
     Route: 065
     Dates: start: 20130205
  10. POLARAMINE [Concomitant]
     Active Substance: DEXCHLORPHENIRAMINE MALEATE
     Route: 065
     Dates: end: 20131206
  11. LASIX [Concomitant]
     Active Substance: FUROSEMIDE
     Indication: PRODUCT USED FOR UNKNOWN INDICATION
     Route: 065
     Dates: start: 20130309, end: 20130328
  12. VIDAZA [Suspect]
     Active Substance: AZACITIDINE
     Route: 041
     Dates: start: 20130531, end: 20130606
  13. VIDAZA [Suspect]
     Active Substance: AZACITIDINE
     Route: 041
     Dates: start: 20131023, end: 20131028
  14. WINTERMIN [Concomitant]
     Active Substance: PROMAZINE
     Indication: PRODUCT USED FOR UNKNOWN INDICATION
     Route: 065
     Dates: start: 20130320, end: 20130321
  15. SLOW-K [Concomitant]
     Active Substance: POTASSIUM CHLORIDE
     Indication: PRODUCT USED FOR UNKNOWN INDICATION
     Route: 065
     Dates: start: 20130308, end: 20130418
  16. MUCOSOLVAN [Concomitant]
     Active Substance: AMBROXOL\CLENBUTEROL
     Indication: PRODUCT USED FOR UNKNOWN INDICATION
     Route: 065
     Dates: start: 20130814, end: 20130821
  17. CRAVIT [Concomitant]
     Active Substance: LEVOFLOXACIN
     Indication: PRODUCT USED FOR UNKNOWN INDICATION
     Route: 065
     Dates: start: 20130205, end: 20130302
  18. CRAVIT [Concomitant]
     Active Substance: LEVOFLOXACIN
     Route: 065
     Dates: start: 20130430
  19. POLARAMINE [Concomitant]
     Active Substance: DEXCHLORPHENIRAMINE MALEATE
     Indication: PRODUCT USED FOR UNKNOWN INDICATION
     Route: 065
     Dates: start: 20130206
  20. MAGMITT [Concomitant]
     Active Substance: MAGNESIUM OXIDE
     Indication: PRODUCT USED FOR UNKNOWN INDICATION
     Route: 065
     Dates: start: 20131116, end: 20131211
  21. KYTRIL [Concomitant]
     Active Substance: GRANISETRON HYDROCHLORIDE
     Indication: PRODUCT USED FOR UNKNOWN INDICATION
     Route: 065
     Dates: start: 20130206, end: 20130212
  22. EXJADE [Concomitant]
     Active Substance: DEFERASIROX
     Indication: PRODUCT USED FOR UNKNOWN INDICATION
     Route: 065
     Dates: start: 20130617, end: 20130918
  23. TAKEPRON [Concomitant]
     Active Substance: LANSOPRAZOLE
     Indication: PRODUCT USED FOR UNKNOWN INDICATION
     Route: 065
  24. MUCODYNE [Concomitant]
     Active Substance: CARBOCYSTEINE
     Indication: PRODUCT USED FOR UNKNOWN INDICATION
     Route: 065
     Dates: start: 20130312, end: 20130529
  25. MUCODYNE [Concomitant]
     Active Substance: CARBOCYSTEINE
     Route: 065
     Dates: start: 20130620, end: 20130918

REACTIONS (4)
  - Gastric cancer [Not Recovered/Not Resolved]
  - Sepsis [Recovered/Resolved]
  - Neutrophil count decreased [Not Recovered/Not Resolved]
  - White blood cell count decreased [Recovering/Resolving]

NARRATIVE: CASE EVENT DATE: 20130302
